FAERS Safety Report 13938972 (Version 2)
Quarter: 2017Q4

REPORT INFORMATION
  Report Type: Report from Study
  Country: US (occurrence: US)
  Receive Date: 20170906
  Receipt Date: 20171002
  Transmission Date: 20180320
  Serious: Yes (Other)
  Sender: FDA-Public Use
  Company Number: US-AMGEN-USASL2017133509

PATIENT
  Age: 84 Year
  Sex: Female

DRUGS (3)
  1. CORTISONE [Suspect]
     Active Substance: CORTISONE\HYDROCORTISONE
     Indication: PRODUCT USED FOR UNKNOWN INDICATION
     Dosage: UNK
     Route: 065
  2. ENBREL [Suspect]
     Active Substance: ETANERCEPT
     Indication: RHEUMATOID ARTHRITIS
     Dosage: UNK UNK, QWK
     Route: 065
     Dates: start: 2013
  3. LANTUS [Concomitant]
     Active Substance: INSULIN GLARGINE
     Indication: DIABETES MELLITUS
     Dosage: 5 UNIT, QD

REACTIONS (7)
  - Blood glucose increased [Recovered/Resolved]
  - Choking [Unknown]
  - Dysphonia [Unknown]
  - Oropharyngeal pain [Unknown]
  - Fall [Unknown]
  - Back injury [Unknown]
  - Mobility decreased [Unknown]

NARRATIVE: CASE EVENT DATE: 201708
